FAERS Safety Report 16497327 (Version 2)
Quarter: 2019Q4

REPORT INFORMATION
  Report Type: Spontaneous
  Country: CN (occurrence: CN)
  Receive Date: 20190628
  Receipt Date: 20191125
  Transmission Date: 20200122
  Serious: Yes (Life-Threatening, Hospitalization, Other)
  Sender: FDA-Public Use
  Company Number: CN-ASTRAZENECA-2019SE93518

PATIENT
  Age: 26650 Day
  Sex: Female
  Weight: 50 kg

DRUGS (5)
  1. ROSIGLITAZONE TARTRATE (ROSIGLITAZONE) [Suspect]
     Active Substance: ROSIGLITAZONE
     Indication: DIABETES MELLITUS
     Route: 048
     Dates: start: 20190615, end: 20190616
  2. ONGLYZA [Suspect]
     Active Substance: SAXAGLIPTIN HYDROCHLORIDE
     Indication: DIABETES MELLITUS
     Route: 048
     Dates: start: 20190615, end: 20190616
  3. JUNLIDA (METFORMIN HYDROCHLORIDE) [Suspect]
     Active Substance: METFORMIN HYDROCHLORIDE
     Indication: DIABETES MELLITUS
     Route: 048
     Dates: start: 20190615, end: 20190616
  4. GLIQUIDONE [Suspect]
     Active Substance: GLIQUIDONE
     Indication: DIABETES MELLITUS
     Route: 048
     Dates: start: 20190615, end: 20190616
  5. BEIXI (ACARBOSE) [Suspect]
     Active Substance: ACARBOSE
     Indication: DIABETES MELLITUS
     Route: 048
     Dates: start: 20190615, end: 20190616

REACTIONS (7)
  - Peripheral coldness [Recovering/Resolving]
  - Asthenia [Unknown]
  - Hypoglycaemia [Recovering/Resolving]
  - Gait disturbance [Unknown]
  - Blood glucose abnormal [Unknown]
  - Hyperhidrosis [Recovering/Resolving]
  - Depressed level of consciousness [Recovering/Resolving]

NARRATIVE: CASE EVENT DATE: 20190616
